FAERS Safety Report 9250526 (Version 1)
Quarter: 2013Q1

REPORT INFORMATION
  Report Type: Spontaneous
  Country: US (occurrence: None)
  Receive Date: 20130305
  Receipt Date: 20130305
  Transmission Date: 20140127
  Serious: Yes (Other)
  Sender: FDA-Public Use
  Company Number: 163-21880-12082336 (0)

PATIENT
  Age: 66 Year
  Sex: Male

DRUGS (15)
  1. REVLIMID [Suspect]
     Indication: PLASMA CELL MYELOMA
     Route: 048
     Dates: start: 200906
  2. XANAX(ALPRAZOLAM) [Concomitant]
  3. DEXAMETHASONE (DEXAMETHASONE) [Concomitant]
  4. HYDROMORPHONE (HYDROMORPHONE) [Concomitant]
  5. ZOMETA(ZOLEDRONIC ACID) [Concomitant]
  6. SIMVASTATIN (SIMVASTATIN) [Concomitant]
  7. METFORMIN (METFORMIN) [Concomitant]
  8. FAMCICLOVIR (FAMCICLOVIR) [Concomitant]
  9. GABAPENTIN (GABAPENTIN) [Concomitant]
  10. VITAMIN D (ERGOCALCIFEROL) [Concomitant]
  11. VITAMIN B-12(CYANOCOBALAMIN) [Concomitant]
  12. FENTANYL (FENTANYL) [Concomitant]
  13. WARFARIN (WARFARIN) [Concomitant]
  14. FLOMAX (TAMSULOSIN ) [Concomitant]
  15. VITAMIN D2 (ERGOCALCIFEROL) [Concomitant]

REACTIONS (1)
  - Cataract [None]
